FAERS Safety Report 4949240-3 (Version None)
Quarter: 2006Q1

REPORT INFORMATION
  Report Type: 
  Country: None (occurrence: None)
  Receive Date: 20060321
  Receipt Date: 20060309
  Transmission Date: 20060701
  Serious: Yes (Other)
  Sender: FDA-Public Use
  Company Number: JP-SANOFI-SYNTHELABO-A01200601998

PATIENT
  Age: 35 Year
  Sex: Female

DRUGS (5)
  1. MYSLEE [Suspect]
     Indication: DRUG USE FOR UNKNOWN INDICATION
     Route: 048
     Dates: start: 20020101, end: 20050801
  2. MYSLEE [Suspect]
     Dosage: 100 TO 200 MG DAILY
     Route: 048
     Dates: start: 20050801, end: 20060210
  3. MYSLEE [Suspect]
     Route: 048
     Dates: start: 20060210, end: 20060221
  4. RISPERDAL [Concomitant]
     Indication: DRUG USE FOR UNKNOWN INDICATION
     Dosage: UNK
     Route: 048
  5. VEGETAMIN [Concomitant]
     Indication: DRUG USE FOR UNKNOWN INDICATION
     Dosage: UNK
     Route: 048

REACTIONS (7)
  - CAESAREAN SECTION [None]
  - DRUG ABUSER [None]
  - DRUG DEPENDENCE [None]
  - DRUG EXPOSURE DURING PREGNANCY [None]
  - PREMATURE LABOUR [None]
  - PSYCHIATRIC SYMPTOM [None]
  - SUICIDE ATTEMPT [None]
